FAERS Safety Report 23778744 (Version 1)
Quarter: 2024Q2

REPORT INFORMATION
  Report Type: Spontaneous
  Country: CA (occurrence: CA)
  Receive Date: 20240424
  Receipt Date: 20240424
  Transmission Date: 20240715
  Serious: Yes (Other)
  Sender: FDA-Public Use
  Company Number: CA-TEVA-VS-3188001

PATIENT
  Age: 33 Year
  Sex: Female

DRUGS (8)
  1. METHOTREXATE [Suspect]
     Active Substance: METHOTREXATE
     Indication: Rheumatoid arthritis
     Route: 065
  2. AZATHIOPRINE SODIUM [Concomitant]
     Active Substance: AZATHIOPRINE SODIUM
     Indication: Product used for unknown indication
     Route: 065
  3. HYDROXYCHLOROQUINE SULFATE [Concomitant]
     Active Substance: HYDROXYCHLOROQUINE SULFATE
     Indication: Product used for unknown indication
     Route: 065
  4. SULFASALAZINE [Concomitant]
     Active Substance: SULFASALAZINE
     Indication: Product used for unknown indication
     Route: 065
  5. RUXIENCE [Concomitant]
     Active Substance: RITUXIMAB-PVVR
     Route: 042
  6. RUXIENCE [Concomitant]
     Active Substance: RITUXIMAB-PVVR
     Route: 042
  7. RUXIENCE [Concomitant]
     Active Substance: RITUXIMAB-PVVR
     Route: 042
  8. RUXIENCE [Concomitant]
     Active Substance: RITUXIMAB-PVVR
     Route: 042

REACTIONS (5)
  - COVID-19 [Not Recovered/Not Resolved]
  - Condition aggravated [Not Recovered/Not Resolved]
  - Interstitial lung disease [Not Recovered/Not Resolved]
  - Liver function test increased [Not Recovered/Not Resolved]
  - Treatment failure [Not Recovered/Not Resolved]
